FAERS Safety Report 6192511-6 (Version None)
Quarter: 2009Q2

REPORT INFORMATION
  Report Type: 
  Country: None (occurrence: None)
  Receive Date: 20090518
  Receipt Date: 20090506
  Transmission Date: 20091009
  Serious: Yes (Hospitalization)
  Sender: FDA-Public Use
  Company Number: PHHY2009GB03733

PATIENT
  Sex: Male

DRUGS (1)
  1. CLOZARIL [Suspect]
     Indication: SCHIZOPHRENIA
     Dosage: UNK
     Dates: start: 20040821

REACTIONS (9)
  - ABSCESS DRAINAGE [None]
  - HAEMOGLOBIN DECREASED [None]
  - MALAISE [None]
  - PYELONEPHRITIS [None]
  - RENAL FAILURE [None]
  - SURGERY [None]
  - TACHYCARDIA [None]
  - URETHRAL OBSTRUCTION [None]
  - URINARY TRACT INFECTION [None]
